FAERS Safety Report 24377969 (Version 4)
Quarter: 2025Q1

REPORT INFORMATION
  Report Type: Spontaneous
  Country: US (occurrence: US)
  Receive Date: 20240930
  Receipt Date: 20250305
  Transmission Date: 20250409
  Serious: No
  Sender: LUNDBECK
  Company Number: US-LUNDBECK-DKLU4003840

PATIENT
  Age: 60 Year
  Sex: Female
  Weight: 80.286 kg

DRUGS (1)
  1. VYEPTI [Suspect]
     Active Substance: EPTINEZUMAB-JJMR
     Indication: Migraine
     Dosage: 100 MILLIGRAM
     Route: 041
     Dates: start: 20240809

REACTIONS (10)
  - Nasopharyngitis [Unknown]
  - COVID-19 [Unknown]
  - Headache [Unknown]
  - Throat irritation [Unknown]
  - Coordination abnormal [Unknown]
  - Inflammation [Unknown]
  - Influenza like illness [Recovered/Resolved]
  - Eye infection [Recovered/Resolved]
  - Eye abrasion [Recovered/Resolved]
  - Dry eye [Not Recovered/Not Resolved]

NARRATIVE: CASE EVENT DATE: 20240801
